FAERS Safety Report 8041164-0 (Version None)
Quarter: 2012Q1

REPORT INFORMATION
  Report Type: 
  Country: None (occurrence: None)
  Receive Date: 20120109
  Receipt Date: 20111227
  Transmission Date: 20120608
  Serious: Yes (Death, Hospitalization, Other)
  Sender: FDA-Public Use
  Company Number: 2011P1015546

PATIENT
  Sex: Male
  Weight: 2.86 kg

DRUGS (4)
  1. VANCOMYCIN [Suspect]
     Indication: STAPHYLOCOCCAL INFECTION
  2. CIPROFLOXACIN [Suspect]
     Indication: STAPHYLOCOCCAL INFECTION
  3. DEXAMETHASONE [Suspect]
     Indication: STAPHYLOCOCCAL INFECTION
     Dosage: .4 MG/KG;QD
  4. METRONIDAZOLE [Suspect]
     Indication: STAPHYLOCOCCAL INFECTION

REACTIONS (12)
  - EXPOSURE DURING BREAST FEEDING [None]
  - LEUKOPENIA [None]
  - THROMBOCYTOPENIA [None]
  - KLEBSIELLA TEST POSITIVE [None]
  - TOXIC EPIDERMAL NECROLYSIS [None]
  - MESENTERIC VEIN THROMBOSIS [None]
  - PYREXIA [None]
  - STAPHYLOCOCCUS TEST POSITIVE [None]
  - NECROTISING COLITIS [None]
  - VASCULITIS [None]
  - ULCERATIVE KERATITIS [None]
  - SEPTIC SHOCK [None]
